FAERS Safety Report 7576000-X (Version None)
Quarter: 2011Q2

REPORT INFORMATION
  Report Type: 
  Country: None (occurrence: None)
  Receive Date: 20110628
  Receipt Date: 20110614
  Transmission Date: 20111010
  Serious: Yes (Hospitalization, Other)
  Sender: FDA-Public Use
  Company Number: ES-BAYER-2011-050872

PATIENT
  Age: 39 Year
  Sex: Male
  Weight: 82 kg

DRUGS (1)
  1. ULTRAVIST 150 [Suspect]
     Indication: PRODUCT USED FOR UNKNOWN INDICATION
     Dosage: 110 ML, ONCE
     Route: 042
     Dates: start: 20110613, end: 20110613

REACTIONS (5)
  - LOSS OF CONSCIOUSNESS [None]
  - DYSPNOEA [None]
  - CYANOSIS [None]
  - HYPOTONIA [None]
  - BACK PAIN [None]
